FAERS Safety Report 10525908 (Version 2)
Quarter: 2014Q4

REPORT INFORMATION
  Report Type: Spontaneous
  Country: BR (occurrence: BR)
  Receive Date: 20141017
  Receipt Date: 20141117
  Transmission Date: 20150528
  Serious: Yes (Other)
  Sender: FDA-Public Use
  Company Number: PHHY2014BR136238

PATIENT
  Age: 26 Year
  Sex: Female

DRUGS (16)
  1. PHENOBARBITAL. [Suspect]
     Active Substance: PHENOBARBITAL
     Dosage: UNK UKN, UNK
     Route: 065
  2. TEGRETOL [Suspect]
     Active Substance: CARBAMAZEPINE
     Indication: EPILEPSY
     Dosage: UNK UKN, UNK
     Route: 065
  3. TEGRETOL [Suspect]
     Active Substance: CARBAMAZEPINE
     Dosage: 1 DF, BID
     Route: 065
  4. TEGRETOL [Suspect]
     Active Substance: CARBAMAZEPINE
     Indication: PRODUCT USED FOR UNKNOWN INDICATION
     Dosage: 2 DF, QD
     Route: 065
  5. TRILEPTAL [Suspect]
     Active Substance: OXCARBAZEPINE
     Indication: PRODUCT USED FOR UNKNOWN INDICATION
     Dosage: UNK UKN, UNK
     Route: 065
  6. PHENOBARBITAL. [Suspect]
     Active Substance: PHENOBARBITAL
     Indication: PRODUCT USED FOR UNKNOWN INDICATION
     Dosage: 100 MG, BID
     Route: 065
  7. PHENOBARBITAL. [Suspect]
     Active Substance: PHENOBARBITAL
     Dosage: 100 MG, QD
     Dates: start: 2000
  8. LAMOTRIGINE. [Suspect]
     Active Substance: LAMOTRIGINE
     Indication: PRODUCT USED FOR UNKNOWN INDICATION
     Dosage: UNK UKN, UNK
     Route: 065
  9. DEPAKENE [Suspect]
     Active Substance: VALPROIC ACID
     Indication: PRODUCT USED FOR UNKNOWN INDICATION
     Dosage: 500 MG, TID
     Route: 065
  10. TEGRETOL [Suspect]
     Active Substance: CARBAMAZEPINE
     Dosage: 500 MG, QD
     Route: 065
  11. TEGRETOL [Suspect]
     Active Substance: CARBAMAZEPINE
     Dosage: 1600 MG, QD
     Route: 065
  12. TOPIRAMATE. [Suspect]
     Active Substance: TOPIRAMATE
     Dosage: UNK UKN, UNK
     Route: 065
  13. PHENYTOIN. [Suspect]
     Active Substance: PHENYTOIN
     Indication: PRODUCT USED FOR UNKNOWN INDICATION
     Dosage: 3 DF, QD
     Route: 065
  14. TEGRETOL [Suspect]
     Active Substance: CARBAMAZEPINE
     Indication: COMPLEX PARTIAL SEIZURES
  15. TEGRETOL [Suspect]
     Active Substance: CARBAMAZEPINE
     Dosage: 3 DF, QD
     Route: 065
  16. TEGRETOL [Suspect]
     Active Substance: CARBAMAZEPINE
     Dosage: 6 DF, QD
     Route: 065
     Dates: start: 2000

REACTIONS (5)
  - Chronic obstructive pulmonary disease [Unknown]
  - Somnolence [Unknown]
  - Seizure [Unknown]
  - Hepatic cirrhosis [Unknown]
  - Asthma [Unknown]

NARRATIVE: CASE EVENT DATE: 2002
